FAERS Safety Report 10974834 (Version 1)
Quarter: 2015Q2

REPORT INFORMATION
  Report Type: Spontaneous
  Country: US (occurrence: US)
  Receive Date: 20150401
  Receipt Date: 20150401
  Transmission Date: 20150821
  Serious: No
  Sender: FDA-Public Use
  Company Number: US-HORIZON-ACT-0006-2015

PATIENT
  Sex: Female

DRUGS (3)
  1. ACTIMMUNE [Suspect]
     Active Substance: INTERFERON GAMMA-1B
     Indication: CHRONIC GRANULOMATOUS DISEASE
     Dates: start: 201305
  2. SPORADEX [Concomitant]
  3. BACTRIM [Concomitant]
     Active Substance: SULFAMETHOXAZOLE\TRIMETHOPRIM

REACTIONS (2)
  - Scab [Unknown]
  - Alopecia [Unknown]
